FAERS Safety Report 8888584 (Version 7)
Quarter: 2014Q4

REPORT INFORMATION
  Report Type: Spontaneous
  Country: US (occurrence: US)
  Receive Date: 20121106
  Receipt Date: 20141223
  Transmission Date: 20150529
  Serious: Yes (Hospitalization, Disabling, Other)
  Sender: FDA-Public Use
  Company Number: US-009507513-1210USA012401

PATIENT
  Sex: Female
  Weight: 62.99 kg

DRUGS (2)
  1. DIOVAN [Concomitant]
     Active Substance: VALSARTAN
     Indication: HYPERTENSION
     Dosage: UNK
     Dates: start: 2001
  2. FOSAMAX [Suspect]
     Active Substance: ALENDRONATE SODIUM
     Indication: OSTEOPENIA
     Dosage: 70 MG, QW
     Route: 048
     Dates: start: 200307, end: 200907

REACTIONS (30)
  - Blood calcium decreased [Unknown]
  - Gastrooesophageal reflux disease [Unknown]
  - Joint surgery [Unknown]
  - Adnexa uteri cyst [Unknown]
  - Arthroscopy [Unknown]
  - Hypercalcaemia [Unknown]
  - Joint surgery [Unknown]
  - Bone atrophy [Unknown]
  - Fall [Unknown]
  - Arthralgia [Not Recovered/Not Resolved]
  - Tooth disorder [Unknown]
  - Arteritis [Unknown]
  - Arthralgia [Unknown]
  - Vitamin D decreased [Unknown]
  - Fatigue [Unknown]
  - Fall [Unknown]
  - Arthroscopy [Unknown]
  - Pain in extremity [Not Recovered/Not Resolved]
  - Fall [Unknown]
  - Deep vein thrombosis [Unknown]
  - Pulmonary embolism [Unknown]
  - Ankle fracture [Unknown]
  - Tooth disorder [Unknown]
  - Arteritis [Unknown]
  - Seasonal allergy [Unknown]
  - Arthralgia [Not Recovered/Not Resolved]
  - Femur fracture [Unknown]
  - Open reduction of fracture [Unknown]
  - Femur fracture [Unknown]
  - Intramedullary rod insertion [Unknown]

NARRATIVE: CASE EVENT DATE: 200307
